FAERS Safety Report 5413037-0 (Version None)
Quarter: 2007Q3

REPORT INFORMATION
  Report Type: 
  Country: None (occurrence: None)
  Receive Date: 20070713
  Receipt Date: 20070424
  Transmission Date: 20080115
  Serious: No
  Sender: FDA-Public Use
  Company Number: 2006SP003241

PATIENT
  Age: 52 Year
  Sex: Female
  Weight: 58.7408 kg

DRUGS (3)
  1. LUNESTA [Suspect]
     Indication: INSOMNIA
     Dosage: 2 MG; ORAL, 3 MG; ORAL
     Route: 048
     Dates: start: 20050101
  2. LUNESTA [Suspect]
     Indication: INSOMNIA
     Dosage: 2 MG; ORAL, 3 MG; ORAL
     Route: 048
     Dates: start: 20060101
  3. SYNTHROID [Concomitant]

REACTIONS (2)
  - HEPATIC ENZYME INCREASED [None]
  - MIDDLE INSOMNIA [None]
